FAERS Safety Report 4892078-6 (Version None)
Quarter: 2006Q1

REPORT INFORMATION
  Report Type: 
  Country: None (occurrence: None)
  Receive Date: 20060123
  Receipt Date: 20051222
  Transmission Date: 20060701
  Serious: Yes (Other)
  Sender: FDA-Public Use
  Company Number: GR200512003853

PATIENT
  Age: 42 Year
  Sex: Female
  Weight: 16 kg

DRUGS (1)
  1. CECLOR [Suspect]
     Indication: EAR INFECTION
     Dosage: 825 MG, DAILY (1/D), ORAL
     Route: 048
     Dates: start: 20051108, end: 20051114

REACTIONS (6)
  - ARTHRALGIA [None]
  - MOBILITY DECREASED [None]
  - OEDEMA [None]
  - PAIN [None]
  - PYREXIA [None]
  - URTICARIA [None]
